FAERS Safety Report 8879878 (Version 1)
Quarter: 2012Q4

REPORT INFORMATION
  Report Type: 
  Country: TH (occurrence: TH)
  Receive Date: 20121031
  Receipt Date: 20121031
  Transmission Date: 20130627
  Serious: Yes (Hospitalization)
  Sender: FDA-Public Use
  Company Number: TH-ASTRAZENECA-2012SE79968

PATIENT
  Age: 44 Year
  Sex: Male

DRUGS (1)
  1. MEROPENEM [Suspect]
     Route: 042
     Dates: start: 20120209, end: 20120302

REACTIONS (1)
  - Drug reaction with eosinophilia and systemic symptoms [Recovered/Resolved with Sequelae]
